FAERS Safety Report 17903093 (Version 1)
Quarter: 2020Q2

REPORT INFORMATION
  Report Type: Spontaneous
  Country: US (occurrence: US)
  Receive Date: 20200617
  Receipt Date: 20200617
  Transmission Date: 20200714
  Serious: Yes (Death)
  Sender: FDA-Public Use
  Company Number: US-BEH-2020118509

PATIENT
  Age: 74 Year
  Sex: Male

DRUGS (5)
  1. PROTHROMBIN COMPLEX CONCENTRATE NOS [Suspect]
     Active Substance: COAGULATION FACTOR IX HUMAN\COAGULATION FACTOR VII HUMAN\COAGULATION FACTOR X HUMAN\PROTHROMBIN
     Indication: PROCOAGULANT THERAPY
  2. ANDEXANET ALFA [Suspect]
     Active Substance: ANDEXANET ALFA
     Dosage: 80 MILLIGRAM, SINGLE
     Route: 042
  3. ANDEXANET ALFA [Suspect]
     Active Substance: ANDEXANET ALFA
     Dosage: 8 MILLIGRAM/MINUTE FOR 120 MINUTES
     Route: 042
  4. PROTHROMBIN COMPLEX CONCENTRATE NOS [Suspect]
     Active Substance: COAGULATION FACTOR IX HUMAN\COAGULATION FACTOR VII HUMAN\COAGULATION FACTOR X HUMAN\PROTHROMBIN
     Indication: CEREBRAL HAEMATOMA
     Dosage: 50 INTERNATIONAL UNIT/KILOGRAM
     Route: 042
  5. APIXABAN [Concomitant]
     Active Substance: APIXABAN
     Route: 065

REACTIONS (3)
  - Embolic stroke [Fatal]
  - No adverse event [Unknown]
  - Product use in unapproved indication [Unknown]
